FAERS Safety Report 19472546 (Version 2)
Quarter: 2022Q3

REPORT INFORMATION
  Report Type: Spontaneous
  Country: US (occurrence: US)
  Receive Date: 20210629
  Receipt Date: 20220729
  Transmission Date: 20221027
  Serious: Yes (Hospitalization)
  Sender: FDA-Public Use
  Company Number: US-PFIZER INC-2021294556

PATIENT
  Age: 74 Year
  Sex: Female

DRUGS (1)
  1. VYNDAQEL [Suspect]
     Active Substance: TAFAMIDIS MEGLUMINE
     Dosage: 20 MG
     Dates: start: 20210301

REACTIONS (4)
  - Hip fracture [Unknown]
  - Product dose omission issue [Unknown]
  - Fatigue [Unknown]
  - Dyspnoea [Unknown]
